FAERS Safety Report 7571365-7 (Version None)
Quarter: 2011Q2

REPORT INFORMATION
  Report Type: 
  Country: None (occurrence: None)
  Receive Date: 20110624
  Receipt Date: 20110616
  Transmission Date: 20111010
  Serious: Yes (Hospitalization)
  Sender: FDA-Public Use
  Company Number: B0728189A

PATIENT
  Age: 47 Year
  Sex: Female

DRUGS (3)
  1. TEGRETOL [Concomitant]
     Indication: EPILEPSY
     Dosage: 400MG TWICE PER DAY
     Dates: start: 20030101
  2. DEPAKENE [Concomitant]
     Indication: EPILEPSY
     Dosage: 300MG PER DAY
     Dates: start: 20030101
  3. LAMICTAL [Suspect]
     Indication: EPILEPSY
     Dosage: 25MG FIVE TIMES PER DAY
     Dates: start: 20060113, end: 20060219

REACTIONS (9)
  - ERYTHEMA [None]
  - ORAL DISCOMFORT [None]
  - RASH [None]
  - EYE PAIN [None]
  - STEVENS-JOHNSON SYNDROME [None]
  - LIP EROSION [None]
  - CONJUNCTIVITIS [None]
  - EYE IRRITATION [None]
  - RASH MACULAR [None]
